FAERS Safety Report 9762803 (Version 1)
Quarter: 2013Q4

REPORT INFORMATION
  Report Type: Spontaneous
  Country: US (occurrence: US)
  Receive Date: 20131216
  Receipt Date: 20131216
  Transmission Date: 20140711
  Serious: Yes (Hospitalization)
  Sender: FDA-Public Use
  Company Number: US-MYLANLABS-2013S1027421

PATIENT
  Age: 77 Year
  Sex: Male

DRUGS (2)
  1. ALENDRONIC ACID [Suspect]
     Indication: BONE DENSITY DECREASED
     Dosage: PRESCRIBED 70MG ONCE PER WEEK BUT INSTEAD STARTED TAKING IT EVERY NIGHT
     Route: 065
  2. ASPIRIN [Concomitant]
     Dosage: DAILY [DOSE NOT STATED]
     Route: 065

REACTIONS (3)
  - Laryngeal ulceration [Recovering/Resolving]
  - Haemoptysis [Recovering/Resolving]
  - Accidental overdose [Recovering/Resolving]
